FAERS Safety Report 13739103 (Version 1)
Quarter: 2017Q3

REPORT INFORMATION
  Report Type: Spontaneous
  Country: US (occurrence: US)
  Receive Date: 20170710
  Receipt Date: 20170710
  Transmission Date: 20171127
  Serious: No
  Sender: FDA-Public Use
  Company Number: US-SAOL THERAPEUTICS-2017SAO00826

PATIENT
  Weight: 81.63 kg

DRUGS (13)
  1. CLONIDINE. [Suspect]
     Active Substance: CLONIDINE
     Dosage: 750 ?G, \DAY
     Route: 037
  2. TOPAMAX [Concomitant]
     Active Substance: TOPIRAMATE
  3. XANAX [Concomitant]
     Active Substance: ALPRAZOLAM
  4. ZANAFLEX [Concomitant]
     Active Substance: TIZANIDINE HYDROCHLORIDE
  5. MIRTAZAPINE. [Concomitant]
     Active Substance: MIRTAZAPINE
  6. OPANA [Concomitant]
     Active Substance: OXYMORPHONE HYDROCHLORIDE
  7. BACLOFEN. [Suspect]
     Active Substance: BACLOFEN
     Indication: SPINAL PAIN
     Dosage: 48.26 ?G, \DAY
     Route: 037
     Dates: start: 201503
  8. VITAMIN D [Concomitant]
     Active Substance: CHOLECALCIFEROL
  9. KLONOPIN [Concomitant]
     Active Substance: CLONAZEPAM
  10. FIORICET [Concomitant]
     Active Substance: ACETAMINOPHEN\BUTALBITAL\CAFFEINE
  11. DILAUDID [Suspect]
     Active Substance: HYDROMORPHONE HYDROCHLORIDE
     Dosage: 7.5 MG, \DAY
     Route: 037
  12. BUPIVACAINE. [Suspect]
     Active Substance: BUPIVACAINE
     Dosage: 5.625 MG, \DAY
     Route: 037
  13. SYNTHROID [Concomitant]
     Active Substance: LEVOTHYROXINE SODIUM

REACTIONS (4)
  - Pain [Not Recovered/Not Resolved]
  - Device infusion issue [Not Recovered/Not Resolved]
  - Therapeutic product ineffective for unapproved indication [Unknown]
  - Off label use [Unknown]

NARRATIVE: CASE EVENT DATE: 2016
